FAERS Safety Report 9067831 (Version 3)
Quarter: 2014Q2

REPORT INFORMATION
  Report Type: Report from Study
  Country: GB (occurrence: GB)
  Receive Date: 20130128
  Receipt Date: 20140405
  Transmission Date: 20141212
  Serious: Yes (Hospitalization)
  Sender: FDA-Public Use
  Company Number: GB-ROCHE-1183846

PATIENT
  Age: 96 Year
  Sex: Male

DRUGS (5)
  1. RANIBIZUMAB [Suspect]
     Indication: AGE-RELATED MACULAR DEGENERATION
     Route: 050
     Dates: start: 20100916
  2. RANIBIZUMAB [Suspect]
     Route: 050
     Dates: start: 20120703, end: 20120703
  3. ASPIRIN [Concomitant]
     Route: 065
     Dates: start: 20120327
  4. OMEPRAZOLE [Concomitant]
     Route: 065
     Dates: start: 20120327
  5. BENDROFLUMETHIAZIDE [Concomitant]
     Route: 065
     Dates: start: 20100207

REACTIONS (4)
  - Sepsis [Not Recovered/Not Resolved]
  - Urinary tract infection [Not Recovered/Not Resolved]
  - Tachyarrhythmia [Unknown]
  - Fall [Unknown]
